FAERS Safety Report 19308694 (Version 2)
Quarter: 2021Q2

REPORT INFORMATION
  Report Type: Report from Study
  Country: NO (occurrence: NO)
  Receive Date: 20210525
  Receipt Date: 20210609
  Transmission Date: 20210717
  Serious: Yes (Other)
  Sender: FDA-Public Use
  Company Number: NO-INCYTE CORPORATION-2018IN009107

PATIENT

DRUGS (24)
  1. JAKAVI [Suspect]
     Active Substance: RUXOLITINIB
     Indication: POLYCYTHAEMIA VERA
     Dosage: 20 OT
     Route: 048
     Dates: start: 20180312, end: 20180423
  2. JAKAVI [Suspect]
     Active Substance: RUXOLITINIB
     Dosage: 15 OT
     Route: 048
     Dates: start: 20181011, end: 20200609
  3. HYDROXYUREA. [Concomitant]
     Active Substance: HYDROXYUREA
     Dosage: 500 OT
     Route: 050
     Dates: start: 20150618, end: 20180312
  4. MAGNESIUM [Concomitant]
     Active Substance: MAGNESIUM
     Indication: HYPOMAGNESAEMIA
     Dosage: 300 OT
     Route: 065
     Dates: start: 201804
  5. AMLODIPINE [Concomitant]
     Active Substance: AMLODIPINE BESYLATE
     Indication: ESSENTIAL HYPERTENSION
     Dosage: 10 OT
     Route: 065
     Dates: start: 201804
  6. HYDROXYUREA. [Concomitant]
     Active Substance: HYDROXYUREA
     Dosage: 500 OT
     Route: 065
     Dates: start: 20180312, end: 20180409
  7. HYDROXYUREA. [Concomitant]
     Active Substance: HYDROXYUREA
     Dosage: 500 OT
     Route: 065
     Dates: start: 20180410, end: 20180423
  8. JAKAVI [Suspect]
     Active Substance: RUXOLITINIB
     Dosage: 30 OT
     Route: 048
     Dates: start: 20180424, end: 20180606
  9. JAKAVI [Suspect]
     Active Substance: RUXOLITINIB
     Dosage: 20 OT
     Route: 048
     Dates: start: 20180607, end: 20180905
  10. CETIRIZIN [Concomitant]
     Active Substance: CETIRIZINE HYDROCHLORIDE
     Indication: PRURITUS
     Dosage: 10 OT
     Route: 065
     Dates: start: 20170814, end: 201804
  11. HYDROXYUREA. [Concomitant]
     Active Substance: HYDROXYUREA
     Indication: POLYCYTHAEMIA VERA
     Dosage: 4500 OT
     Route: 065
     Dates: start: 20120307, end: 20120814
  12. CANDESARTANCILEXETIL/HYDROCHLOORTHIAZIDE SAND [Concomitant]
     Active Substance: CANDESARTAN CILEXETIL\HYDROCHLOROTHIAZIDE
     Indication: HYPERTENSION
     Dosage: 32 MG (12.5)
     Route: 065
     Dates: start: 201804
  13. ESOMEPRAZOL [ESOMEPRAZOLE SODIUM] [Concomitant]
     Indication: PROPHYLAXIS AGAINST GASTROINTESTINAL ULCER
     Dosage: 20 OT
     Route: 065
  14. RIVAROXABAN [Concomitant]
     Active Substance: RIVAROXABAN
     Indication: ATRIAL FIBRILLATION
     Dosage: 20 OT
     Route: 065
     Dates: start: 201705
  15. METOPROLOL. [Concomitant]
     Active Substance: METOPROLOL
     Indication: HYPERTENSION
     Dosage: 50 UNK
     Route: 065
     Dates: start: 201111
  16. CHROMIUM [Concomitant]
     Active Substance: CHROMIC CHLORIDE\CHROMIUM
     Indication: BLOOD GLUCOSE DECREASED
     Dosage: 100 OT
     Route: 065
     Dates: start: 201805
  17. FLEKAINID [Concomitant]
     Indication: ATRIAL FIBRILLATION
     Dosage: 100 UNK
     Route: 065
     Dates: start: 20170519
  18. KANDESARTAN [Concomitant]
     Indication: HYPERTENSION
     Dosage: 32 OT
     Route: 065
     Dates: start: 2011, end: 201804
  19. JAKAVI [Suspect]
     Active Substance: RUXOLITINIB
     Dosage: 10 OT
     Route: 048
     Dates: start: 20180906, end: 20181010
  20. HYDROXYUREA. [Concomitant]
     Active Substance: HYDROXYUREA
     Indication: HAEMATOCRIT INCREASED
     Dosage: 1000 OT
     Route: 050
     Dates: start: 20120814, end: 20150617
  21. HYDROXYUREA. [Concomitant]
     Active Substance: HYDROXYUREA
     Dosage: 500 OT
     Route: 065
     Dates: start: 20180424, end: 20180507
  22. HYDROXYUREA. [Concomitant]
     Active Substance: HYDROXYUREA
     Dosage: 500 OT
     Route: 065
     Dates: start: 20180508, end: 20180523
  23. MAGNESIUM [Concomitant]
     Active Substance: MAGNESIUM
     Indication: RESTLESS LEGS SYNDROME
  24. METFORMIN [Concomitant]
     Active Substance: METFORMIN HYDROCHLORIDE
     Indication: TYPE 2 DIABETES MELLITUS
     Dosage: 500 OT
     Route: 065
     Dates: start: 2015

REACTIONS (8)
  - Dizziness [Unknown]
  - Nausea [Unknown]
  - Hypertension [Not Recovered/Not Resolved]
  - Headache [Unknown]
  - Restless legs syndrome [Recovering/Resolving]
  - Blood creatinine increased [Recovered/Resolved]
  - Hyperglycaemia [Recovering/Resolving]
  - Respiratory tract infection [Recovered/Resolved]

NARRATIVE: CASE EVENT DATE: 201804
